FAERS Safety Report 5227032-8 (Version None)
Quarter: 2007Q1

REPORT INFORMATION
  Report Type: 
  Country: None (occurrence: None)
  Receive Date: 20070201
  Receipt Date: 20070201
  Transmission Date: 20070707
  Serious: Yes (Other)
  Sender: FDA-Public Use
  Company Number: None

PATIENT
  Age: 77 Year
  Sex: Female
  Weight: 77.1115 kg

DRUGS (15)
  1. PRESERVISION BY BAUSCH AND LOMB [Suspect]
     Indication: MACULAR DEGENERATION
     Dosage: 2 SOFTGELS DAILY 1 IN A.M. + P.M. ORAL
     Route: 048
     Dates: start: 20060527, end: 20060815
  2. NAPROXEN [Concomitant]
  3. OPREMAZOL DR [Concomitant]
  4. DILTIAZEM HCL [Concomitant]
  5. DITROPAN XL [Suspect]
  6. CALTRATE 500 + D [Concomitant]
  7. COD LIVER OIL A+D [Concomitant]
  8. FIBRE CHOICE [Concomitant]
  9. COLACE [Concomitant]
  10. ASPIRIN [Concomitant]
  11. BUTALBITAL ACETAMINOPHEN AND CAFFEINE [Concomitant]
  12. PROCHLORPHERAZINE [Concomitant]
  13. GAVISCON [Concomitant]
  14. TYLENOL [Concomitant]
  15. CHLOR-TRIMETON [Concomitant]

REACTIONS (14)
  - BALANCE DISORDER [None]
  - BLOOD PRESSURE DECREASED [None]
  - CHEST PAIN [None]
  - CIRCULATORY COLLAPSE [None]
  - FALL [None]
  - GAIT DISTURBANCE [None]
  - HAIR COLOUR CHANGES [None]
  - HIGH DENSITY LIPOPROTEIN DECREASED [None]
  - INNER EAR DISORDER [None]
  - LOSS OF CONSCIOUSNESS [None]
  - NAUSEA [None]
  - TRANSIENT ISCHAEMIC ATTACK [None]
  - VERTIGO [None]
  - VERTIGO POSITIONAL [None]
